FAERS Safety Report 4667556-5 (Version None)
Quarter: 2005Q2

REPORT INFORMATION
  Report Type: 
  Country: None (occurrence: None)
  Receive Date: 20050428
  Receipt Date: 20050214
  Transmission Date: 20051028
  Serious: Yes (Other)
  Sender: FDA-Public Use
  Company Number: 2005030586

PATIENT
  Age: 89 Year
  Sex: Female
  Weight: 68.0396 kg

DRUGS (2)
  1. ZITHROMAX [Suspect]
     Indication: EAR INFECTION
     Dosage: ORAL
     Route: 048
     Dates: start: 20050101, end: 20050205
  2. ALL OTHER THERAPEUTIC PRODUCTS (ALL OTHER THERAPEUTIC PRODUCTS) [Concomitant]

REACTIONS (1)
  - DEAFNESS [None]
